FAERS Safety Report 25940302 (Version 2)
Quarter: 2025Q4

REPORT INFORMATION
  Report Type: Spontaneous
  Country: JP (occurrence: JP)
  Receive Date: 20251020
  Receipt Date: 20251024
  Transmission Date: 20260117
  Serious: Yes (Hospitalization)
  Sender: BAYER HEALTHCARE PHARMACEUTICALS INC.
  Company Number: JP-BAYER-2025A135253

PATIENT
  Age: 7 Decade
  Sex: Female

DRUGS (4)
  1. ADEMPAS [Suspect]
     Active Substance: RIOCIGUAT
     Dosage: UNK
     Route: 048
  2. SOTATERCEPT [Concomitant]
     Active Substance: SOTATERCEPT
     Indication: Pulmonary arterial hypertension
     Dosage: 0.7 MG/KG, Q3WK (0.3MG/KG FOR THE FIRST DOSE)
     Route: 058
     Dates: start: 20250826
  3. MACITENTAN [Concomitant]
     Active Substance: MACITENTAN
     Dosage: UNK
     Route: 048
  4. SELEXIPAG [Concomitant]
     Active Substance: SELEXIPAG
     Dosage: UNK
     Route: 048

REACTIONS (2)
  - White blood cell count increased [Recovered/Resolved]
  - Nasopharyngitis [Recovered/Resolved]

NARRATIVE: CASE EVENT DATE: 20251010
